FAERS Safety Report 13824240 (Version 1)
Quarter: 2017Q3

REPORT INFORMATION
  Report Type: Spontaneous
  Country: US (occurrence: US)
  Receive Date: 20170802
  Receipt Date: 20170802
  Transmission Date: 20171127
  Serious: No
  Sender: FDA-Public Use
  Company Number: US-BAYER-2017-146489

PATIENT
  Sex: Male

DRUGS (1)
  1. CLARITIN [Suspect]
     Active Substance: LORATADINE
     Indication: NASOPHARYNGITIS
     Dosage: UNK (1 TEASPOON)
     Route: 065

REACTIONS (2)
  - Product use in unapproved indication [Unknown]
  - Expired product administered [None]

NARRATIVE: CASE EVENT DATE: 2016
